FAERS Safety Report 8071470-5 (Version None)
Quarter: 2012Q1

REPORT INFORMATION
  Report Type: 
  Country: None (occurrence: None)
  Receive Date: 20120119
  Receipt Date: 20120113
  Transmission Date: 20120608
  Serious: Yes (Hospitalization, Other)
  Sender: FDA-Public Use
  Company Number: CL-373-2012

PATIENT
  Age: 21 Year
  Sex: Male

DRUGS (2)
  1. METRONIDAZOLE [Suspect]
     Indication: BRAIN ABSCESS
     Dosage: 1.5G/DAY ORAL
     Route: 048
  2. CEFTRIAXONE [Suspect]
     Indication: BRAIN ABSCESS
     Dosage: 4G/DAY IV
     Route: 042

REACTIONS (8)
  - TOXIC ENCEPHALOPATHY [None]
  - AXONAL NEUROPATHY [None]
  - CRANIAL NERVE PALSIES MULTIPLE [None]
  - NAUSEA [None]
  - CEREBELLAR SYNDROME [None]
  - VOMITING [None]
  - NEUROTOXICITY [None]
  - DIPLOPIA [None]
